FAERS Safety Report 4626893-0 (Version None)
Quarter: 2005Q2

REPORT INFORMATION
  Report Type: 
  Country: None (occurrence: None)
  Receive Date: 20050405
  Receipt Date: 20040909
  Transmission Date: 20051028
  Serious: Yes (Hospitalization)
  Sender: FDA-Public Use
  Company Number: PHBS2004JP11933

PATIENT
  Age: 62 Year
  Sex: Male
  Weight: 80 kg

DRUGS (5)
  1. RENIVACE [Concomitant]
     Route: 048
  2. GLEEVEC [Suspect]
     Indication: CHRONIC MYELOID LEUKAEMIA
     Dosage: 600 MG/DAY
     Route: 048
     Dates: start: 20050121
  3. GLEEVEC [Suspect]
     Dosage: 400 MG, QD
     Route: 048
     Dates: start: 20011222, end: 20030605
  4. GLEEVEC [Suspect]
     Dosage: 600 MG/DAY
     Route: 048
     Dates: start: 20030606, end: 20041111
  5. INTERFERON [Concomitant]

REACTIONS (5)
  - BONE SWELLING [None]
  - OSTEOMYELITIS [None]
  - PURULENT DISCHARGE [None]
  - SEQUESTRECTOMY [None]
  - TRANSPLANT [None]
